FAERS Safety Report 8037572-4 (Version None)
Quarter: 2012Q1

REPORT INFORMATION
  Report Type: 
  Country: None (occurrence: None)
  Receive Date: 20120111
  Receipt Date: 20120103
  Transmission Date: 20120608
  Serious: Yes (Other)
  Sender: FDA-Public Use
  Company Number: US-ABBOTT-12P-163-0890778-00

PATIENT

DRUGS (1)
  1. ANDROGEL [Suspect]
     Indication: TESTIS CANCER
     Dates: start: 20090101

REACTIONS (3)
  - ARTHRALGIA [None]
  - ROTATOR CUFF SYNDROME [None]
  - MUSCULOSKELETAL DISCOMFORT [None]
